FAERS Safety Report 7746731-7 (Version None)
Quarter: 2011Q3

REPORT INFORMATION
  Report Type: 
  Country: None (occurrence: None)
  Receive Date: 20110913
  Receipt Date: 20110907
  Transmission Date: 20111222
  Serious: Yes (Other)
  Sender: FDA-Public Use
  Company Number: CA-ABBOTT-11P-028-0852313-00

PATIENT
  Sex: Female
  Weight: 54.48 kg

DRUGS (2)
  1. HUMIRA [Suspect]
     Indication: BEHCET'S SYNDROME
     Route: 058
     Dates: start: 20110109, end: 20110720
  2. PREDNISONE [Concomitant]
     Indication: BEHCET'S SYNDROME
     Route: 048
     Dates: start: 20080101

REACTIONS (1)
  - ABORTION SPONTANEOUS [None]
